FAERS Safety Report 9601998 (Version 1)
Quarter: 2013Q4

REPORT INFORMATION
  Report Type: Spontaneous
  Country: AU (occurrence: AU)
  Receive Date: 20131007
  Receipt Date: 20131007
  Transmission Date: 20140711
  Serious: Yes (Other)
  Sender: FDA-Public Use
  Company Number: PHHY2013AU110950

PATIENT
  Age: 61 Year
  Sex: Male

DRUGS (6)
  1. ZOMETA [Suspect]
     Dosage: UNK UKN, UNK
  2. DEXAMETHASONE [Concomitant]
     Dosage: UNK UKN, UNK
  3. DOXORUBICIN HYDROCHLORIDE [Concomitant]
     Dosage: UNK UKN, UNK
  4. TROPISETRON HYDROCHLORIDE [Concomitant]
     Dosage: UNK UKN, UNK
  5. VALACICLOVIR HYDROCHLORIDE [Concomitant]
     Dosage: UNK UKN, UNK
  6. VELCADE [Concomitant]
     Dosage: UNK UKN, UNK

REACTIONS (1)
  - Iridocyclitis [Unknown]
